FAERS Safety Report 6631388-9 (Version None)
Quarter: 2010Q1

REPORT INFORMATION
  Report Type: 
  Country: None (occurrence: None)
  Receive Date: 20100312
  Receipt Date: 20100311
  Transmission Date: 20100710
  Serious: Yes (Death)
  Sender: FDA-Public Use
  Company Number: GB-JNJFOC-20100303122

PATIENT
  Age: 56 Year
  Sex: Male
  Weight: 82.8 kg

DRUGS (4)
  1. RISPERIDONE [Suspect]
     Indication: PSYCHOTIC DISORDER
     Route: 048
  2. VENLAFAXINE [Suspect]
     Indication: PSYCHOTIC DISORDER
     Route: 048
  3. PROCYCLIDINE HYDROCHLORIDE [Concomitant]
     Route: 065
  4. PROPRANOLOL HYDROCHLORIDE [Concomitant]
     Route: 065

REACTIONS (2)
  - CARDIOTOXICITY [None]
  - MYOCARDIAL ISCHAEMIA [None]
